FAERS Safety Report 6084513-5 (Version None)
Quarter: 2009Q1

REPORT INFORMATION
  Report Type: 
  Country: None (occurrence: None)
  Receive Date: 20090219
  Receipt Date: 20090210
  Transmission Date: 20090719
  Serious: Yes (Death)
  Sender: FDA-Public Use
  Company Number: US-SANOFI-SYNTHELABO-A03200900558

PATIENT
  Sex: Male

DRUGS (2)
  1. UROXATRAL [Suspect]
     Indication: DYSURIA
     Route: 048
     Dates: start: 20090119, end: 20090204
  2. VALIUM [Concomitant]
     Indication: ANXIETY
     Route: 048

REACTIONS (7)
  - ABDOMINAL PAIN UPPER [None]
  - DELIRIUM [None]
  - DIARRHOEA [None]
  - HYPERBILIRUBINAEMIA [None]
  - JAUNDICE [None]
  - PYREXIA [None]
  - VOMITING [None]
